FAERS Safety Report 21366128 (Version 2)
Quarter: 2022Q4

REPORT INFORMATION
  Report Type: Spontaneous
  Country: JP (occurrence: JP)
  Receive Date: 20220922
  Receipt Date: 20221024
  Transmission Date: 20230112
  Serious: Yes (Hospitalization)
  Sender: FDA-Public Use
  Company Number: JP-NEUROCRINE BIOSCIENCES INC.-2022NBI06583

PATIENT

DRUGS (7)
  1. VALBENAZINE [Suspect]
     Active Substance: VALBENAZINE
     Indication: Tardive dyskinesia
     Dosage: 40 MILLIGRAM, QD
     Route: 048
     Dates: start: 20220804, end: 20220901
  2. CLONAZEPAM [Concomitant]
     Active Substance: CLONAZEPAM
  3. PREGABALIN [Concomitant]
     Active Substance: PREGABALIN
  4. FAMOTIDINE [Concomitant]
     Active Substance: FAMOTIDINE
  5. LEXAPRO [Concomitant]
     Active Substance: ESCITALOPRAM OXALATE
  6. ETIZOLAM [Concomitant]
     Active Substance: ETIZOLAM
  7. AKINETON [Concomitant]
     Active Substance: BIPERIDEN HYDROCHLORIDE

REACTIONS (2)
  - Aortic dissection [Unknown]
  - Abdominal pain upper [Unknown]

NARRATIVE: CASE EVENT DATE: 20220901
